FAERS Safety Report 6382062-8 (Version None)
Quarter: 2009Q3

REPORT INFORMATION
  Report Type: 
  Country: None (occurrence: None)
  Receive Date: 20090930
  Receipt Date: 20090918
  Transmission Date: 20100115
  Serious: Yes (Other)
  Sender: FDA-Public Use
  Company Number: PHEH2009US11401

PATIENT
  Sex: Female

DRUGS (4)
  1. LOPRESSOR [Suspect]
     Indication: HYPERTENSION
     Dosage: UNK, UNK
     Route: 065
  2. LISINOPRIL [Suspect]
     Indication: HYPERTENSION
     Dosage: UNK, UNK
     Route: 065
  3. LASIX [Suspect]
     Indication: HYPERTENSION
     Dosage: UNK, UNK
     Route: 065
  4. NORVASC [Suspect]
     Indication: HYPERTENSION
     Dosage: UNK, UNK
     Route: 065

REACTIONS (1)
  - RENAL DISORDER [None]
